FAERS Safety Report 25162338 (Version 1)
Quarter: 2025Q2

REPORT INFORMATION
  Report Type: Spontaneous
  Country: US (occurrence: None)
  Receive Date: 20250404
  Receipt Date: 20250404
  Transmission Date: 20250717
  Serious: No
  Sender: FDA-CTU
  Company Number: None

PATIENT

DRUGS (1)
  1. SEMAGLUTIDE [Suspect]
     Active Substance: SEMAGLUTIDE

REACTIONS (6)
  - Nausea [None]
  - Vomiting [None]
  - Incorrect dose administered [None]
  - Product packaging issue [None]
  - Suspected counterfeit product [None]
  - Product storage error [None]
